FAERS Safety Report 6581098-1 (Version None)
Quarter: 2010Q1

REPORT INFORMATION
  Report Type: 
  Country: None (occurrence: None)
  Receive Date: 20100215
  Receipt Date: 20100203
  Transmission Date: 20100710
  Serious: Yes (Hospitalization)
  Sender: FDA-Public Use
  Company Number: PHEH2009US17203

PATIENT
  Sex: Female

DRUGS (1)
  1. EXJADE [Suspect]
     Indication: BLOOD IRON INCREASED
     Dosage: UNK
     Route: 048
     Dates: start: 20090814, end: 20091014

REACTIONS (1)
  - IDIOPATHIC THROMBOCYTOPENIC PURPURA [None]
